FAERS Safety Report 21614752 (Version 1)
Quarter: 2022Q4

REPORT INFORMATION
  Report Type: Spontaneous
  Country: IT (occurrence: IT)
  Receive Date: 20221118
  Receipt Date: 20221118
  Transmission Date: 20230113
  Serious: Yes (Other)
  Sender: FDA-Public Use
  Company Number: IT-BAYER-2022A156233

PATIENT
  Age: 39 Year
  Sex: Female

DRUGS (1)
  1. MIRENA [Suspect]
     Active Substance: LEVONORGESTREL
     Dosage: 20?G/DAY
     Route: 015

REACTIONS (6)
  - Device dislocation [None]
  - Hydronephrosis [None]
  - Haematuria [None]
  - Flank pain [None]
  - Abdominal pain [None]
  - Abnormal uterine bleeding [None]
